FAERS Safety Report 8383315 (Version 2)
Quarter: 2012Q4

REPORT INFORMATION
  Report Type: Report from Study
  Country: NL (occurrence: NL)
  Receive Date: 20120130
  Receipt Date: 20120910
  Transmission Date: 20130627
  Serious: Yes (Hospitalization)
  Sender: FDA-Public Use
  Company Number: NL-ROCHE-1033500

PATIENT
  Age: 44 Year
  Sex: Male
  Weight: 105 kg

DRUGS (5)
  1. AVASTIN [Suspect]
     Indication: BRAIN NEOPLASM MALIGNANT
     Dosage: Date of last dose: 16/Jan/2012
     Route: 042
     Dates: start: 20111121
  2. LOMUSTINE [Suspect]
     Indication: BRAIN NEOPLASM MALIGNANT
     Dosage: Date of last dose: 16/Jan/2012
     Route: 048
     Dates: start: 20111121
  3. NIFEDIPINE [Concomitant]
     Dosage: Last dose prior to SAE 23 Jan 2012
     Route: 048
     Dates: start: 20120103
  4. DEXAMETHASONE [Concomitant]
     Dosage: Last dose prior to SAE 23 Jan 2012
     Route: 048
     Dates: start: 20111021
  5. PANTOPRAZOLE [Concomitant]
     Dosage: Last dose prior to SAE 23 Jan 2012
     Route: 048
     Dates: start: 20110909

REACTIONS (1)
  - Convulsion [Not Recovered/Not Resolved]
